FAERS Safety Report 4654609-0 (Version None)
Quarter: 2005Q2

REPORT INFORMATION
  Report Type: 
  Country: None (occurrence: None)
  Receive Date: 20050503
  Receipt Date: 20050503
  Transmission Date: 20051028
  Serious: Yes (Other)
  Sender: FDA-Public Use
  Company Number: None

PATIENT
  Sex: Female
  Weight: 91.3998 kg

DRUGS (1)
  1. CAMPTOSAR [Suspect]
     Indication: COLON CANCER
     Dosage: 240MG   OTO   INTRAVENOU
     Route: 042
     Dates: start: 20050422, end: 20050422

REACTIONS (8)
  - ASTHENIA [None]
  - DYSPNOEA [None]
  - FATIGUE [None]
  - FEELING HOT [None]
  - HYPOTENSION [None]
  - INFUSION RELATED REACTION [None]
  - MOBILITY DECREASED [None]
  - PRURITUS [None]
